FAERS Safety Report 9892065 (Version 1)
Quarter: 2014Q1

REPORT INFORMATION
  Report Type: Report from Study
  Country: NL (occurrence: NL)
  Receive Date: 20140212
  Receipt Date: 20140212
  Transmission Date: 20141002
  Serious: Yes (Other)
  Sender: FDA-Public Use
  Company Number: PHHY2014NL016501

PATIENT
  Sex: Male

DRUGS (3)
  1. ZOMETA [Suspect]
     Indication: PROSTATE CANCER METASTATIC
     Dosage: 4 MG PER 100 ML PER 4 WEEKS
     Route: 042
  2. ZOMETA [Suspect]
     Dosage: 4 MG PER 100 ML PER 4 WEEKS
     Route: 042
     Dates: start: 20111220
  3. ZOMETA [Suspect]
     Dosage: 4 MG PER 100 ML PER 4 WEEKS
     Route: 042
     Dates: start: 20140109

REACTIONS (2)
  - Jaw disorder [Recovering/Resolving]
  - Osteomyelitis [Unknown]
